FAERS Safety Report 23768954 (Version 1)
Quarter: 2024Q2

REPORT INFORMATION
  Report Type: Spontaneous
  Country: RU (occurrence: None)
  Receive Date: 20240422
  Receipt Date: 20240422
  Transmission Date: 20240716
  Serious: Yes (Other)
  Sender: FDA-Public Use
  Company Number: RU-ROCHE-3546363

PATIENT
  Age: 10 Year
  Sex: Male
  Weight: 31 kg

DRUGS (1)
  1. EMICIZUMAB [Suspect]
     Active Substance: EMICIZUMAB
     Indication: Factor VIII deficiency
     Dosage: WEEK 1 TO WEEK 4 IN THE LOAD REGIMEN OF 3 MG/KG ONCE A WEEK, THEN FROM WEEK 5 IN THE MAINTENANCE REG
     Route: 058
     Dates: start: 202303

REACTIONS (3)
  - Tooth extraction [Unknown]
  - Haemorrhage [Unknown]
  - Circumcision [Unknown]

NARRATIVE: CASE EVENT DATE: 20230512
